FAERS Safety Report 13040098 (Version 8)
Quarter: 2020Q3

REPORT INFORMATION
  Report Type: Spontaneous
  Country: FR (occurrence: FR)
  Receive Date: 20161219
  Receipt Date: 20200825
  Transmission Date: 20201102
  Serious: Yes (Death, Life-Threatening, Hospitalization, Other)
  Sender: FDA-Public Use
  Company Number: FR-SA-2016SA216624

PATIENT

DRUGS (10)
  1. OLMESARTAN MEDOXOMIL. [Suspect]
     Active Substance: OLMESARTAN MEDOXOMIL
     Dosage: 129 TABLETS, 1.29 G OF AMLODIPINE AND 5.16 G OF OLMESARTAN
     Route: 048
  2. SEVIKAR [Suspect]
     Active Substance: AMLODIPINE BESYLATE\OLMESARTAN MEDOXOMIL
     Dosage: 6.45 G,1X
     Route: 048
  3. SEVIKAR [Suspect]
     Active Substance: AMLODIPINE BESYLATE\OLMESARTAN MEDOXOMIL
     Dosage: 129 129 TABLETS, 1.29 G OF AMLODIPINE AND 5.16 G OF OLMESARTAN
     Route: 048
  4. ZOLPIDEM TARTRATE. [Suspect]
     Active Substance: ZOLPIDEM TARTRATE
     Dosage: UNK
     Route: 065
  5. AMLODIPINE [Suspect]
     Active Substance: AMLODIPINE BESYLATE
     Dosage: UNK UNK,UNK
     Route: 065
  6. LYSANXIA [Suspect]
     Active Substance: PRAZEPAM
     Dosage: 420 MG,1X,42 TABLETS
     Route: 048
  7. NORDAZEPAM [Suspect]
     Active Substance: NORDAZEPAM
     Dosage: UNK UNK,1X
     Route: 065
  8. SEROPLEX [Suspect]
     Active Substance: ESCITALOPRAM OXALATE
     Dosage: 280 MG,1X, TABLET
     Route: 048
  9. CITALOPRAM [Suspect]
     Active Substance: CITALOPRAM HYDROBROMIDE
     Dosage: UNK UNK,1X
     Route: 065
  10. ATARAX [Suspect]
     Active Substance: HYDROXYZINE HYDROCHLORIDE
     Dosage: 700 MG,1X, 28 TABLETS
     Route: 048

REACTIONS (19)
  - Loss of consciousness [Unknown]
  - Metabolic acidosis [Fatal]
  - Toxicity to various agents [Fatal]
  - Heart rate decreased [Unknown]
  - Blood pressure decreased [Unknown]
  - Acute kidney injury [Fatal]
  - Skin necrosis [Unknown]
  - Multiple organ dysfunction syndrome [Fatal]
  - Acute hepatic failure [Fatal]
  - Drug level increased [Fatal]
  - Shock [Unknown]
  - Intentional overdose [Fatal]
  - Gastrointestinal ischaemia [Unknown]
  - Cardiogenic shock [Unknown]
  - Coma [Unknown]
  - Blood bicarbonate decreased [Fatal]
  - Hyperlactacidaemia [Fatal]
  - Bezoar [Recovered/Resolved]
  - Haemodynamic instability [Unknown]
